FAERS Safety Report 8609213-6 (Version None)
Quarter: 2012Q3

REPORT INFORMATION
  Report Type: 
  Country: None (occurrence: None)
  Receive Date: 20120821
  Receipt Date: 20120808
  Transmission Date: 20120928
  Serious: No
  Sender: FDA-Public Use
  Company Number: US-ASTRAZENECA-2012SE56003

PATIENT
  Age: 81 Year
  Sex: Female
  Weight: 102.1 kg

DRUGS (7)
  1. GABAPENTIN [Concomitant]
     Dosage: HS
  2. LASIX [Concomitant]
     Dosage: EVERY MORNING
  3. THYROID TAB [Concomitant]
     Dosage: EVERY MORNING
  4. GLIPIZIDE [Concomitant]
     Dosage: EVERY MORNING
  5. CRESTOR [Suspect]
     Indication: BLOOD CHOLESTEROL ABNORMAL
     Route: 048
     Dates: start: 20100101
  6. NEXIUM [Suspect]
     Dosage: AT MORNING
     Route: 048
  7. CRESTOR [Suspect]
     Route: 048
     Dates: start: 20110101

REACTIONS (6)
  - EYE DISORDER [None]
  - OSTEOPOROSIS [None]
  - BODY HEIGHT DECREASED [None]
  - MOBILITY DECREASED [None]
  - ASTHENIA [None]
  - FATIGUE [None]
